FAERS Safety Report 5627587-5 (Version None)
Quarter: 2008Q1

REPORT INFORMATION
  Report Type: 
  Country: None (occurrence: None)
  Receive Date: 20080215
  Receipt Date: 20080204
  Transmission Date: 20080703
  Serious: Yes (Hospitalization)
  Sender: FDA-Public Use
  Company Number: US-ROCHE-537358

PATIENT
  Age: 85 Year
  Sex: Female
  Weight: 72.6 kg

DRUGS (2)
  1. CAPECITABINE [Suspect]
     Indication: COLORECTAL CANCER
     Route: 048
     Dates: start: 20071125, end: 20071201
  2. CAPECITABINE [Suspect]
     Route: 048
     Dates: start: 20080101

REACTIONS (1)
  - INTESTINAL OBSTRUCTION [None]
